FAERS Safety Report 4755416-0 (Version None)
Quarter: 2005Q3

REPORT INFORMATION
  Report Type: 
  Country: None (occurrence: None)
  Receive Date: 20050826
  Receipt Date: 20050826
  Transmission Date: 20060218
  Serious: Yes (Other)
  Sender: FDA-Public Use
  Company Number: None

PATIENT
  Age: 59 Year
  Sex: Female
  Weight: 112.9457 kg

DRUGS (4)
  1. FIORINAL [Suspect]
     Indication: FIBROMYALGIA
     Dosage: ONE TO TWO PO Q 4-6 H PR
     Route: 048
     Dates: start: 20040701, end: 20040801
  2. FIORINAL [Suspect]
     Indication: MIGRAINE
     Dosage: ONE TO TWO PO Q 4-6 H PR
     Route: 048
     Dates: start: 20040701, end: 20040801
  3. FIORINAL [Suspect]
     Indication: FIBROMYALGIA
     Dosage: ONE TO TWO PO Q 4-6 H PR
     Route: 048
     Dates: start: 20040801, end: 20040901
  4. FIORINAL [Suspect]
     Indication: MIGRAINE
     Dosage: ONE TO TWO PO Q 4-6 H PR
     Route: 048
     Dates: start: 20040801, end: 20040901

REACTIONS (8)
  - ATRIAL FIBRILLATION [None]
  - CHRONIC FATIGUE SYNDROME [None]
  - CONDITION AGGRAVATED [None]
  - DRUG EFFECT DECREASED [None]
  - DRUG INEFFECTIVE [None]
  - INADEQUATE ANALGESIA [None]
  - INSOMNIA [None]
  - PHARMACEUTICAL PRODUCT COMPLAINT [None]
